FAERS Safety Report 8014247 (Version 6)
Quarter: 2013Q2

REPORT INFORMATION
  Report Type: Spontaneous
  Country: US (occurrence: US)
  Receive Date: 20110629
  Receipt Date: 20130403
  Transmission Date: 20140414
  Serious: Yes (Hospitalization, Disabling, Other)
  Sender: FDA-Public Use
  Company Number: US-ASTELLAS-2011US003262

PATIENT
  Age: 51 Year
  Sex: Male
  Weight: 143 kg

DRUGS (2)
  1. PROGRAF [Suspect]
     Indication: MYASTHENIA GRAVIS
     Dosage: 5 MG, UID/QD
     Route: 048
     Dates: start: 20080701, end: 201006
  2. PROGRAF [Suspect]
     Dosage: 5 MG, UID/QD
     Route: 048

REACTIONS (5)
  - Off label use [Unknown]
  - Disease progression [Recovered/Resolved]
  - Treatment noncompliance [Recovered/Resolved]
  - Pneumonia aspiration [Recovered/Resolved]
  - Dysphagia [Recovered/Resolved]
